FAERS Safety Report 25438592 (Version 1)
Quarter: 2025Q2

REPORT INFORMATION
  Report Type: Spontaneous
  Country: US (occurrence: US)
  Receive Date: 20250616
  Receipt Date: 20250616
  Transmission Date: 20250716
  Serious: No
  Sender: SANOFI AVENTIS
  Company Number: US-SA-2025SA163650

PATIENT
  Sex: Female

DRUGS (3)
  1. DUPIXENT [Suspect]
     Active Substance: DUPILUMAB
     Indication: Eczema
     Dosage: 300MG QOW
     Route: 058
     Dates: start: 201906, end: 202408
  2. DUPIXENT [Suspect]
     Active Substance: DUPILUMAB
     Route: 058
     Dates: start: 20250507, end: 20250507
  3. DUPIXENT [Suspect]
     Active Substance: DUPILUMAB
     Dosage: 300 MG, QOW
     Route: 058
     Dates: start: 202505

REACTIONS (2)
  - Rebound eczema [Recovering/Resolving]
  - Maternal exposure during pregnancy [Unknown]

NARRATIVE: CASE EVENT DATE: 20240101
